FAERS Safety Report 9480112 (Version 2)
Quarter: 2013Q3

REPORT INFORMATION
  Report Type: Spontaneous
  Country: US (occurrence: US)
  Receive Date: 20130828
  Receipt Date: 20130828
  Transmission Date: 20140515
  Serious: Yes (Death, Hospitalization)
  Sender: FDA-Public Use
  Company Number: US-AMGEN-KDL054677

PATIENT
  Age: 52 Year
  Sex: Male

DRUGS (2)
  1. ENBREL [Suspect]
     Indication: RHEUMATOID ARTHRITIS
     Dosage: 25 MG, 2 TIMES/WK
     Route: 058
     Dates: start: 20001122
  2. ANTIBIOTICS [Suspect]

REACTIONS (6)
  - Hepatic cancer [Fatal]
  - Metastases to lung [Unknown]
  - Disease progression [Fatal]
  - Pneumonia [Unknown]
  - Pulmonary embolism [Unknown]
  - Chemotherapy [Unknown]
